FAERS Safety Report 14383685 (Version 2)
Quarter: 2018Q1

REPORT INFORMATION
  Report Type: Report from Study
  Country: CA (occurrence: CA)
  Receive Date: 20180115
  Receipt Date: 20180129
  Transmission Date: 20180509
  Serious: Yes (Other)
  Sender: FDA-Public Use
  Company Number: CA-AMGEN-CANSL2018004623

PATIENT
  Age: 74 Year
  Sex: Male

DRUGS (14)
  1. AMLODIPINE [Concomitant]
     Active Substance: AMLODIPINE BESYLATE
     Indication: HYPERTENSION
     Dosage: UNK UNK, QD (TWO TABLET ONCE A DAY)
  2. ALTACE [Concomitant]
     Active Substance: RAMIPRIL
     Dosage: 15 MG, QD (IN AM)
  3. LOSEC [Concomitant]
     Active Substance: OMEPRAZOLE
     Indication: GASTROOESOPHAGEAL REFLUX DISEASE
     Dosage: UNK
  4. TEVA PANTOPRAZOLE [Concomitant]
     Dosage: 40 MG, QD (IN AM)
  5. ENBREL [Suspect]
     Active Substance: ETANERCEPT
     Indication: PSORIASIS
     Dosage: 50 MG, UNK
     Route: 065
     Dates: start: 20110830
  6. APO-DUTASTERIDE [Concomitant]
     Active Substance: DUTASTERIDE
     Dosage: UNK UNK, QD (1 TABLET IN AM)
  7. METFORMIN [Concomitant]
     Active Substance: METFORMIN HYDROCHLORIDE
     Dosage: UNK UNK, BID (ONE TABLET)
  8. ATORVASTATIN [Concomitant]
     Active Substance: ATORVASTATIN
     Indication: BLOOD CHOLESTEROL
     Dosage: UNK UNK, QD (1 TABLET)
  9. CLOPIDOGREL [Concomitant]
     Active Substance: CLOPIDOGREL BISULFATE
     Indication: THROMBOSIS
     Dosage: UNK
  10. PLAVIX [Concomitant]
     Active Substance: CLOPIDOGREL BISULFATE
     Indication: THROMBOSIS
     Dosage: UNK UNK, QD (1 TABLET IN AM)
  11. HUMULIN NOS [Concomitant]
     Active Substance: INSULIN HUMAN
     Indication: DIABETES MELLITUS
     Dosage: (50 UNITS), BID
  12. METOPROLOL. [Concomitant]
     Active Substance: METOPROLOL
     Dosage: UNK UNK, BID (1.5 TABLET)
  13. APO TAMSULOSIN [Concomitant]
     Indication: PROSTATIC OPERATION
     Dosage: UNK UNK, QD (2 TABLETS IN AM)
  14. FUROSEMIDE. [Concomitant]
     Active Substance: FUROSEMIDE
     Dosage: UNK UNK, QD (1 TABLET IN AM)

REACTIONS (7)
  - Wrong technique in product usage process [Unknown]
  - Haematuria [Unknown]
  - Neoplasm prostate [Unknown]
  - Cerebrovascular accident [Unknown]
  - Bladder neoplasm [Unknown]
  - Cardiac disorder [Unknown]
  - Intentional product misuse [Unknown]

NARRATIVE: CASE EVENT DATE: 2014
